FAERS Safety Report 15839167 (Version 1)
Quarter: 2019Q1

REPORT INFORMATION
  Report Type: Spontaneous
  Country: US (occurrence: US)
  Receive Date: 20190117
  Receipt Date: 20190117
  Transmission Date: 20190417
  Serious: Yes (Hospitalization, Other)
  Sender: FDA-Public Use
  Company Number: US-B.I. PHARMACEUTICALS,INC./RIDGEFIELD-2019-BI-001403

PATIENT
  Age: 53 Year
  Sex: Female

DRUGS (1)
  1. ATROVENT [Suspect]
     Active Substance: IPRATROPIUM BROMIDE
     Indication: OBLITERATIVE BRONCHIOLITIS
     Dosage: 2 PUFFS 4 TIMES A DAY; STRENGTH: 17 MCG; FORM: INHALATION AEROSOL ?ACTION: DOSE NOT CHANGED
     Route: 055
     Dates: start: 201606

REACTIONS (14)
  - Dyspnoea [Unknown]
  - Haemophilus infection [Unknown]
  - Influenza [Unknown]
  - Food poisoning [Unknown]
  - Off label use [Unknown]
  - Hip fracture [Not Recovered/Not Resolved]
  - Suicidal ideation [Recovered/Resolved]
  - Laryngitis [Not Recovered/Not Resolved]
  - Bedridden [Not Recovered/Not Resolved]
  - Bone disorder [Unknown]
  - Pain [Not Recovered/Not Resolved]
  - Pneumonia [Unknown]
  - Respiratory syncytial virus infection [Not Recovered/Not Resolved]
  - Cortisol decreased [Not Recovered/Not Resolved]

NARRATIVE: CASE EVENT DATE: 201606
